FAERS Safety Report 4957895-2 (Version None)
Quarter: 2006Q1

REPORT INFORMATION
  Report Type: 
  Country: None (occurrence: None)
  Receive Date: 20060330
  Receipt Date: 20060321
  Transmission Date: 20060701
  Serious: Yes (Hospitalization)
  Sender: FDA-Public Use
  Company Number: 2006PK00569

PATIENT
  Age: 27 Year
  Sex: Female

DRUGS (11)
  1. SEROQUEL [Suspect]
     Route: 048
     Dates: start: 20060111, end: 20060127
  2. SEROQUEL [Interacting]
     Route: 048
     Dates: start: 20060128, end: 20060206
  3. SEROQUEL [Interacting]
     Route: 048
     Dates: start: 20060207
  4. FLUOXETINE HCL [Interacting]
     Route: 048
     Dates: start: 20060111, end: 20060125
  5. FLUOXETINE HCL [Interacting]
     Route: 048
     Dates: start: 20060126, end: 20060126
  6. MELPERON [Interacting]
     Route: 048
     Dates: start: 20060111, end: 20060125
  7. MELPERON [Interacting]
     Route: 048
     Dates: start: 20060126, end: 20060206
  8. MELPERON [Interacting]
     Route: 048
     Dates: start: 20060207
  9. CIPRALEX [Interacting]
     Route: 048
     Dates: start: 20060126
  10. L-THYROXIN [Concomitant]
     Route: 048
     Dates: start: 20050101
  11. BENALAPRIL [Concomitant]
     Route: 048
     Dates: start: 20060101

REACTIONS (4)
  - DRUG INTERACTION [None]
  - ELECTROCARDIOGRAM QT PROLONGED [None]
  - EPILEPSY [None]
  - GRAND MAL CONVULSION [None]
